FAERS Safety Report 25234314 (Version 1)
Quarter: 2025Q2

REPORT INFORMATION
  Report Type: Spontaneous
  Country: FR (occurrence: FR)
  Receive Date: 20250424
  Receipt Date: 20250424
  Transmission Date: 20250716
  Serious: Yes (Hospitalization)
  Sender: ALEXION PHARMACEUTICALS
  Company Number: None

PATIENT
  Age: 57 Year
  Weight: 57 kg

DRUGS (5)
  1. IMFINZI [Suspect]
     Active Substance: DURVALUMAB
     Indication: Bronchial carcinoma
  2. PACLITAXEL [Suspect]
     Active Substance: PACLITAXEL
     Indication: Bronchial carcinoma
  3. BEVACIZUMAB [Suspect]
     Active Substance: BEVACIZUMAB
     Indication: Bronchial carcinoma
  4. ATORVASTATIN [Suspect]
     Active Substance: ATORVASTATIN
     Indication: Product used for unknown indication
  5. CLOPIDOGREL [Suspect]
     Active Substance: CLOPIDOGREL BISULFATE
     Indication: Product used for unknown indication

REACTIONS (1)
  - Interstitial lung disease [Not Recovered/Not Resolved]
